FAERS Safety Report 6113861-5 (Version None)
Quarter: 2009Q1

REPORT INFORMATION
  Report Type: 
  Country: None (occurrence: None)
  Receive Date: 20090312
  Receipt Date: 20090305
  Transmission Date: 20090719
  Serious: Yes (Hospitalization)
  Sender: FDA-Public Use
  Company Number: SE-ABBOTT-09P-150-0559987-00

PATIENT
  Age: 84 Year
  Sex: Female

DRUGS (9)
  1. KLACID TABLETS [Suspect]
     Indication: HELICOBACTER INFECTION
     Dates: start: 20060123, end: 20060203
  2. ESOMEPRAZOLE [Suspect]
     Indication: HELICOBACTER INFECTION
     Route: 048
     Dates: start: 20060123, end: 20060203
  3. AMOXICILLIN [Suspect]
     Indication: HELICOBACTER INFECTION
     Route: 048
     Dates: start: 20060123, end: 20060203
  4. ALVEDON [Suspect]
     Indication: DRUG USE FOR UNKNOWN INDICATION
  5. DEXOFEN [Suspect]
     Indication: DRUG USE FOR UNKNOWN INDICATION
  6. MADOPARK [Concomitant]
     Indication: DRUG USE FOR UNKNOWN INDICATION
     Dosage: 100 MG/25 MG IS THE UNIT DOSE
  7. RISPERDAL ORAL LYOPHILISATE [Concomitant]
     Indication: DRUG USE FOR UNKNOWN INDICATION
  8. SALURES [Concomitant]
     Indication: DRUG USE FOR UNKNOWN INDICATION
  9. KALEORID [Concomitant]
     Indication: DRUG USE FOR UNKNOWN INDICATION

REACTIONS (3)
  - ECCHYMOSIS [None]
  - RASH GENERALISED [None]
  - VASCULITIS [None]
